FAERS Safety Report 7545653-4 (Version None)
Quarter: 2011Q2

REPORT INFORMATION
  Report Type: 
  Country: None (occurrence: None)
  Receive Date: 20110614
  Receipt Date: 20110606
  Transmission Date: 20111010
  Serious: Yes (Hospitalization)
  Sender: FDA-Public Use
  Company Number: JP-BRISTOL-MYERS SQUIBB COMPANY-15618747

PATIENT
  Age: 71 Year
  Sex: Male
  Weight: 92 kg

DRUGS (10)
  1. MAGNESIUM SULFATE [Concomitant]
  2. PLACEBO [Suspect]
     Indication: SCHIZOPHRENIA
     Dosage: 9FEB11 3RD TREATMENT
     Dates: start: 20110209, end: 20110309
  3. ARIPIPRAZOLE [Suspect]
     Indication: SCHIZOPHRENIA
     Dosage: 9FEB11 3RD TREATMENT
     Route: 030
     Dates: start: 20110209, end: 20110309
  4. ABILIFY [Suspect]
     Indication: SCHIZOPHRENIA
     Dosage: 1DEC10 1ST TREATMENT 12JAN11 2ND TREATMENT
     Route: 048
     Dates: start: 20101202, end: 20110310
  5. DEPAS [Concomitant]
  6. SENNOSIDE [Concomitant]
  7. AMLODIPINE [Concomitant]
     Dosage: AMLODIN OD
     Dates: end: 20110324
  8. MICARDIS [Concomitant]
     Dates: end: 20110324
  9. TASMOLIN [Concomitant]
     Dates: end: 20110310
  10. GASMOTIN [Concomitant]

REACTIONS (1)
  - SCHIZOPHRENIA [None]
